FAERS Safety Report 6072068-0 (Version None)
Quarter: 2009Q1

REPORT INFORMATION
  Report Type: 
  Country: None (occurrence: None)
  Receive Date: 20090205
  Receipt Date: 20090205
  Transmission Date: 20090719
  Serious: Yes (Life-Threatening, Hospitalization)
  Sender: FDA-Public Use
  Company Number: None

PATIENT
  Age: 49 Year
  Sex: Male
  Weight: 101 kg

DRUGS (1)
  1. METHOTREXATE [Suspect]
     Indication: ACUTE LYMPHOCYTIC LEUKAEMIA
     Dosage: 40MG WEEKLY PO
     Route: 048
     Dates: start: 20071201

REACTIONS (9)
  - CONFUSIONAL STATE [None]
  - DELIRIUM [None]
  - DRUG HYPERSENSITIVITY [None]
  - DYSPNOEA [None]
  - HYPOXIA [None]
  - PANCYTOPENIA [None]
  - PNEUMONITIS [None]
  - PULMONARY TOXICITY [None]
  - PYREXIA [None]
